FAERS Safety Report 4796591-1 (Version None)
Quarter: 2005Q4

REPORT INFORMATION
  Report Type: 
  Country: None (occurrence: None)
  Receive Date: 20051007
  Receipt Date: 20050923
  Transmission Date: 20060501
  Serious: Yes (Death)
  Sender: FDA-Public Use
  Company Number: 02100-USA-04-0230

PATIENT
  Age: 71 Year
  Sex: Male

DRUGS (4)
  1. PLETAL [Suspect]
     Indication: THROMBOSIS PROPHYLAXIS
     Dosage: 100 MG  BID ORAL
     Route: 048
     Dates: start: 20021204
  2. ASPIRIN [Concomitant]
  3. DILTIAZEM [Concomitant]
  4. ISOSORBIDE DINITRATE [Concomitant]

REACTIONS (3)
  - CHRONIC OBSTRUCTIVE PULMONARY DISEASE [None]
  - MYOCARDIAL INFARCTION [None]
  - RESPIRATORY FAILURE [None]
